FAERS Safety Report 13627789 (Version 1)
Quarter: 2017Q2

REPORT INFORMATION
  Report Type: Spontaneous
  Country: US (occurrence: US)
  Receive Date: 20170531
  Receipt Date: 20170531
  Transmission Date: 20170830
  Serious: Yes (Life-Threatening, Hospitalization)
  Sender: FDA-Public Use
  Company Number: US-ASTELLAS-1587589

PATIENT
  Age: 74 Year
  Sex: Female
  Weight: 62.2 kg

DRUGS (10)
  1. TARCEVA [Suspect]
     Active Substance: ERLOTINIB HYDROCHLORIDE
     Indication: KAPOSI^S SARCOMA
     Route: 048
     Dates: start: 20150514
  2. ZOFRAN [Concomitant]
     Active Substance: ONDANSETRON HYDROCHLORIDE
  3. LETROZOLE. [Concomitant]
     Active Substance: LETROZOLE
  4. ATENOLOL. [Concomitant]
     Active Substance: ATENOLOL
  5. LIPITOR [Concomitant]
     Active Substance: ATORVASTATIN CALCIUM
  6. ADVIL [Concomitant]
     Active Substance: IBUPROFEN
  7. TARCEVA [Suspect]
     Active Substance: ERLOTINIB HYDROCHLORIDE
     Indication: LUNG NEOPLASM MALIGNANT
     Route: 048
     Dates: start: 20150527, end: 20150625
  8. AMBIEN [Concomitant]
     Active Substance: ZOLPIDEM TARTRATE
  9. ASPIR 81 [Concomitant]
  10. COLACE [Concomitant]
     Active Substance: DOCUSATE SODIUM

REACTIONS (3)
  - Rash [Recovered/Resolved]
  - Pyrexia [Unknown]
  - Diarrhoea [Recovered/Resolved]

NARRATIVE: CASE EVENT DATE: 20150602
